FAERS Safety Report 5465428-X (Version None)
Quarter: 2007Q3

REPORT INFORMATION
  Report Type: 
  Country: None (occurrence: None)
  Receive Date: 20070920
  Receipt Date: 20070920
  Transmission Date: 20080115
  Serious: No
  Sender: FDA-Public Use
  Company Number: None

PATIENT
  Age: 71 Year
  Sex: Male

DRUGS (1)
  1. CIPROFLOXACIN [Suspect]
     Indication: NEPHROLITHIASIS
     Dosage: 400MG IV
     Route: 042
     Dates: start: 20070226, end: 20070226

REACTIONS (1)
  - RASH [None]
